FAERS Safety Report 5247360-X (Version None)
Quarter: 2007Q1

REPORT INFORMATION
  Report Type: 
  Country: None (occurrence: None)
  Receive Date: 20070227
  Receipt Date: 20070216
  Transmission Date: 20070707
  Serious: Yes (Life-Threatening, Hospitalization, Other)
  Sender: FDA-Public Use
  Company Number: HQWYE510131JUL06

PATIENT
  Sex: Female
  Weight: 35 kg

DRUGS (9)
  1. MYLOTARG [Suspect]
     Indication: ACUTE MYELOID LEUKAEMIA
     Route: 041
     Dates: start: 20060602, end: 20060602
  2. GRAN [Suspect]
     Indication: NEUTROPHIL COUNT DECREASED
     Dosage: 300 UG/DAY
     Route: 041
     Dates: start: 20060614, end: 20060621
  3. CIPROFLOXACIN [Suspect]
     Indication: PNEUMONIA
     Dosage: 300 MG/DAY
     Route: 041
     Dates: start: 20060620, end: 20060622
  4. BIAPENEM [Suspect]
     Indication: PNEUMONIA
     Dosage: 1.2 G/DAY
     Route: 041
     Dates: start: 20060616, end: 20060618
  5. BIAPENEM [Suspect]
     Dosage: 0.6 G/DAY
     Route: 041
     Dates: start: 20060619, end: 20060625
  6. VFEND [Concomitant]
     Indication: SYSTEMIC MYCOSIS
     Dosage: 360 MG/DAY
     Route: 041
     Dates: start: 20060619, end: 20060619
  7. VFEND [Concomitant]
     Dosage: 180 MG/DAY
     Route: 041
     Dates: start: 20060620, end: 20060622
  8. AMINOACETIC ACID/CYSTEINE/GLYCYRRHIZIC ACID [Concomitant]
     Dosage: NOT PROVIDED
     Route: 042
     Dates: start: 20060603, end: 20060605
  9. VANCOMYCIN HYDROCHLORIDE [Suspect]
     Indication: PNEUMONIA
     Dosage: 1 G/DAY
     Route: 041
     Dates: start: 20060614, end: 20060621

REACTIONS (9)
  - LIVER DISORDER [None]
  - NEUTROPHIL COUNT DECREASED [None]
  - PLATELET COUNT DECREASED [None]
  - PNEUMONIA [None]
  - RESPIRATORY FAILURE [None]
  - SEPSIS [None]
  - SYSTEMIC MYCOSIS [None]
  - TUMOUR LYSIS SYNDROME [None]
  - UPPER GASTROINTESTINAL HAEMORRHAGE [None]
